FAERS Safety Report 11009859 (Version 1)
Quarter: 2015Q2

REPORT INFORMATION
  Report Type: Spontaneous
  Country: JP (occurrence: JP)
  Receive Date: 20150410
  Receipt Date: 20150410
  Transmission Date: 20150821
  Serious: Yes (Death, Other)
  Sender: FDA-Public Use
  Company Number: JP-TEVA-552903ISR

PATIENT
  Age: 82 Year
  Sex: Female
  Weight: 45 kg

DRUGS (6)
  1. MORPHINE HYDROCHLORIDE HYDRATE [Concomitant]
     Active Substance: MORPHINE HYDROCHLORIDE
     Dosage: 50 MILLIGRAM DAILY;
     Route: 058
     Dates: start: 20140909, end: 20140911
  2. FENTOS [Concomitant]
     Active Substance: FENTANYL
     Indication: CANCER PAIN
     Dosage: 3 MILLIGRAM DAILY;
     Route: 062
     Dates: start: 20140830, end: 20140904
  3. OXINORM [Concomitant]
     Active Substance: OXYCODONE HYDROCHLORIDE
     Indication: BREAKTHROUGH PAIN
     Route: 048
     Dates: start: 20140901, end: 20140901
  4. MORPHINE HYDROCHLORIDE HYDRATE [Concomitant]
     Active Substance: MORPHINE HYDROCHLORIDE
     Indication: CANCER PAIN
     Dosage: 25 MILLIGRAM DAILY;
     Route: 058
     Dates: start: 20140904, end: 20140908
  5. E-FEN BUCCAL [Suspect]
     Active Substance: FENTANYL CITRATE
     Indication: BREAKTHROUGH PAIN
     Dosage: 50-150 MICROGRAM DAILY DOSE
     Route: 002
     Dates: start: 20140901, end: 20140904
  6. MORPHINE HYDROCHLORIDE HYDRATE [Concomitant]
     Active Substance: MORPHINE HYDROCHLORIDE
     Dosage: 75 MILLIGRAM DAILY;
     Route: 058
     Dates: start: 20140912, end: 20140912

REACTIONS (3)
  - Depressed level of consciousness [Fatal]
  - Product substitution issue [Unknown]
  - Breast cancer [Fatal]

NARRATIVE: CASE EVENT DATE: 20140901
